FAERS Safety Report 5895148-9 (Version None)
Quarter: 2008Q3

REPORT INFORMATION
  Report Type: 
  Country: None (occurrence: None)
  Receive Date: 20080924
  Receipt Date: 20080911
  Transmission Date: 20090109
  Serious: Yes (Life-Threatening)
  Sender: FDA-Public Use
  Company Number: GB-PFIZER INC-2008077264

PATIENT
  Age: 51 Year
  Sex: Female

DRUGS (3)
  1. GABAPENTIN [Suspect]
  2. AMITRIPTYLINE HCL [Concomitant]
  3. LISINOPRIL [Concomitant]

REACTIONS (3)
  - ANGER [None]
  - HALLUCINATION, AUDITORY [None]
  - SUICIDAL IDEATION [None]
